FAERS Safety Report 10399563 (Version 2)
Quarter: 2014Q3

REPORT INFORMATION
  Report Type: Spontaneous
  Country: US (occurrence: US)
  Receive Date: 20140821
  Receipt Date: 20140930
  Transmission Date: 20150326
  Serious: Yes (Hospitalization)
  Sender: FDA-Public Use
  Company Number: US-BAYER-2014-125254

PATIENT
  Age: 32 Year
  Sex: Female
  Weight: 79.82 kg

DRUGS (1)
  1. MIRENA [Suspect]
     Active Substance: LEVONORGESTREL
     Indication: CONTRACEPTION
     Dosage: 20 MCG/24HR, CONT
     Route: 015
     Dates: start: 20080205, end: 20130528

REACTIONS (9)
  - Device dislocation [None]
  - Abdominal pain [None]
  - Device misuse [None]
  - Pain [None]
  - Scar [None]
  - Back pain [None]
  - Device dislocation [None]
  - Injury [None]
  - Flank pain [None]

NARRATIVE: CASE EVENT DATE: 201304
